FAERS Safety Report 17168848 (Version 3)
Quarter: 2023Q2

REPORT INFORMATION
  Report Type: Other
  Country: DE (occurrence: DE)
  Receive Date: 20191218
  Receipt Date: 20230411
  Transmission Date: 20230722
  Serious: Yes (Other)
  Sender: FDA-Public Use
  Company Number: DE-DENTSPLY-2019SCDP000663

PATIENT
  Sex: Female

DRUGS (2)
  1. MEPIVACAINE HYDROCHLORIDE [Suspect]
     Active Substance: MEPIVACAINE HYDROCHLORIDE
     Indication: Spinal anaesthesia
     Dosage: UNK DOSE OF SCANDICAIN
     Dates: start: 20181023
  2. PRILOCAINE HYDROCHLORIDE [Concomitant]
     Active Substance: PRILOCAINE HYDROCHLORIDE
     Indication: Local anaesthesia
     Dosage: UNK

REACTIONS (4)
  - Spinal cord disorder [Unknown]
  - Incontinence [Unknown]
  - Arachnoiditis [Unknown]
  - Pachymeningitis [Unknown]

NARRATIVE: CASE EVENT DATE: 20211101
